FAERS Safety Report 10166510 (Version 2)
Quarter: 2014Q2

REPORT INFORMATION
  Report Type: Spontaneous
  Country: US (occurrence: US)
  Receive Date: 20140512
  Receipt Date: 20140523
  Transmission Date: 20141212
  Serious: Yes (Hospitalization)
  Sender: FDA-Public Use
  Company Number: US-JNJFOC-20140500923

PATIENT
  Age: 37 Year
  Sex: Female
  Weight: 43.09 kg

DRUGS (1)
  1. LISTERINE MOUTHWASH UNSPECIFIED [Suspect]
     Indication: PRODUCT USED FOR UNKNOWN INDICATION
     Dosage: HALF THE BOTTLE
     Route: 048
     Dates: start: 20140428

REACTIONS (2)
  - Haematemesis [Unknown]
  - Intentional product misuse [Unknown]
